FAERS Safety Report 22355614 (Version 2)
Quarter: 2023Q2

REPORT INFORMATION
  Report Type: Report from Study
  Country: IL (occurrence: IL)
  Receive Date: 20230523
  Receipt Date: 20230620
  Transmission Date: 20230722
  Serious: Yes (Hospitalization)
  Sender: FDA-Public Use
  Company Number: IL-ABBVIE-5176396

PATIENT
  Sex: Male

DRUGS (2)
  1. CARBIDOPA\LEVODOPA [Suspect]
     Active Substance: CARBIDOPA\LEVODOPA
     Indication: Parkinson^s disease
     Dosage: THERAPY DURATION (HRS) REMAINS AT 16, LAST ADMIN DATE: MAY 2023
     Route: 050
     Dates: start: 20230509
  2. CARBIDOPA\LEVODOPA [Suspect]
     Active Substance: CARBIDOPA\LEVODOPA
     Dosage: MORNING DOSAGE(ML) 7.0, CONTINUOUS DOSAGE (ML/H) 2.5 , EXTRA DOSAGE (ML) 1.7, THERAPY DURATION (H...
     Route: 050

REACTIONS (3)
  - Transient ischaemic attack [Recovering/Resolving]
  - Apathy [Recovered/Resolved]
  - Unresponsive to stimuli [Recovering/Resolving]

NARRATIVE: CASE EVENT DATE: 20230101
